FAERS Safety Report 7603348-2 (Version None)
Quarter: 2011Q3

REPORT INFORMATION
  Report Type: 
  Country: None (occurrence: None)
  Receive Date: 20110712
  Receipt Date: 20110630
  Transmission Date: 20111222
  Serious: Yes (Hospitalization)
  Sender: FDA-Public Use
  Company Number: PHHO2010NZ03385

PATIENT
  Sex: Male
  Weight: 60.5 kg

DRUGS (1)
  1. SANDIMMUNE [Suspect]
     Indication: METASTATIC RENAL CELL CARCINOMA
     Dosage: 10 MG
     Route: 048
     Dates: start: 20100226

REACTIONS (6)
  - GOUT [None]
  - ARTHRALGIA [None]
  - PYREXIA [None]
  - ARTHRITIS [None]
  - LOWER RESPIRATORY TRACT INFECTION [None]
  - INFLAMMATION [None]
